FAERS Safety Report 9314802 (Version 1)
Quarter: 2013Q2

REPORT INFORMATION
  Report Type: Spontaneous
  Country: DE (occurrence: DE)
  Receive Date: 20130529
  Receipt Date: 20130529
  Transmission Date: 20140414
  Serious: Yes (Death)
  Sender: FDA-Public Use
  Company Number: DE-PFIZER INC-2013163737

PATIENT
  Age: 48 Year
  Sex: Female

DRUGS (2)
  1. LYRICA [Suspect]
  2. METHADONE [Interacting]

REACTIONS (2)
  - Drug interaction [Fatal]
  - Death [Fatal]
